FAERS Safety Report 16267945 (Version 2)
Quarter: 2019Q3

REPORT INFORMATION
  Report Type: Spontaneous
  Country: JP (occurrence: JP)
  Receive Date: 20190503
  Receipt Date: 20190711
  Transmission Date: 20191004
  Serious: Yes (Other)
  Sender: FDA-Public Use
  Company Number: JP-BRISTOL-MYERS SQUIBB COMPANY-BMS-2019-040873

PATIENT

DRUGS (2)
  1. OPDIVO [Suspect]
     Active Substance: NIVOLUMAB
     Indication: RENAL CELL CARCINOMA
     Route: 065
  2. YERVOY [Suspect]
     Active Substance: IPILIMUMAB
     Indication: RENAL CELL CARCINOMA
     Route: 065

REACTIONS (9)
  - C-reactive protein increased [Unknown]
  - Myasthenia gravis [Unknown]
  - Renal failure [Unknown]
  - Liver function test increased [Unknown]
  - Eosinophil count increased [Unknown]
  - Blood creatine phosphokinase abnormal [Unknown]
  - Blood uric acid increased [Unknown]
  - Malignant neoplasm progression [Unknown]
  - Blood creatinine increased [Unknown]

NARRATIVE: CASE EVENT DATE: 20190424
